FAERS Safety Report 9735176 (Version 1)
Quarter: 2013Q4

REPORT INFORMATION
  Report Type: Report from Study
  Country: PH (occurrence: PH)
  Receive Date: 20131206
  Receipt Date: 20131206
  Transmission Date: 20140711
  Serious: Yes (Other)
  Sender: FDA-Public Use
  Company Number: PH-ASTELLAS-2013EU010624

PATIENT
  Age: 8 Year
  Sex: Male
  Weight: 23.1 kg

DRUGS (2)
  1. SOLIFENACIN [Suspect]
     Indication: HYPERTONIC BLADDER
     Dosage: 3.6 ML, UID/QD
     Route: 048
     Dates: start: 20130829, end: 20130919
  2. SOLIFENACIN [Suspect]
     Dosage: 10 ML, UID/QD
     Route: 048
     Dates: start: 20131101, end: 20131121

REACTIONS (1)
  - Overdose [Unknown]
